FAERS Safety Report 9484173 (Version 1)
Quarter: 2013Q3

REPORT INFORMATION
  Report Type: Spontaneous
  Country: US (occurrence: US)
  Receive Date: 20130828
  Receipt Date: 20130828
  Transmission Date: 20140515
  Serious: Yes (Hospitalization)
  Sender: FDA-Public Use
  Company Number: US-AMGEN-KDL380920

PATIENT
  Age: 54 Year
  Sex: Female

DRUGS (1)
  1. ENBREL [Suspect]
     Indication: RHEUMATOID ARTHRITIS
     Dosage: 25 MG, 2 TIMES/WK
     Route: 058

REACTIONS (7)
  - Dysphagia [Recovered/Resolved]
  - Trismus [Recovered/Resolved]
  - Pneumonia [Recovered/Resolved]
  - Cellulitis [Unknown]
  - Fall [Unknown]
  - Foot fracture [Unknown]
  - Injection site pain [Not Recovered/Not Resolved]
